FAERS Safety Report 13423789 (Version 1)
Quarter: 2017Q2

REPORT INFORMATION
  Report Type: Spontaneous
  Country: US (occurrence: US)
  Receive Date: 20170410
  Receipt Date: 20170410
  Transmission Date: 20170830
  Serious: No
  Sender: FDA-Public Use
  Company Number: US-BAYER-2017-063125

PATIENT
  Age: 19 Year
  Sex: Female

DRUGS (1)
  1. SKYLA [Suspect]
     Active Substance: LEVONORGESTREL
     Indication: CONTRACEPTION
     Dosage: 14 MCG/24HR, CONT
     Route: 015
     Dates: start: 20160825, end: 20170330

REACTIONS (6)
  - Pain [None]
  - Muscle spasms [None]
  - Medical device discomfort [None]
  - Device expulsion [None]
  - Infection [None]
  - Genital discomfort [None]

NARRATIVE: CASE EVENT DATE: 20160825
